FAERS Safety Report 6413187-6 (Version None)
Quarter: 2009Q4

REPORT INFORMATION
  Report Type: 
  Country: None (occurrence: None)
  Receive Date: 20091026
  Receipt Date: 20091012
  Transmission Date: 20100525
  Serious: Yes (Hospitalization)
  Sender: FDA-Public Use
  Company Number: PHHY2009FR39370

PATIENT
  Sex: Female

DRUGS (14)
  1. TAREG [Suspect]
     Dosage: 80 MG, QD
     Route: 048
     Dates: start: 20090701, end: 20090722
  2. LASILIX [Suspect]
     Dosage: 80 MG/DAY
     Route: 042
     Dates: start: 20090710, end: 20090713
  3. LASILIX [Suspect]
     Dosage: 80 MG/DAY
     Route: 048
     Dates: start: 20090714, end: 20090722
  4. GLUCOPHAGE [Concomitant]
     Dosage: 2 G /DAY
     Dates: start: 20090710
  5. GLUCOPHAGE [Concomitant]
     Dosage: 1700 MG/DAY
     Dates: end: 20090722
  6. GLUCOR [Concomitant]
     Dosage: 150 MG/DAY
     Dates: end: 20090710
  7. EXELON [Concomitant]
     Dosage: UNK
  8. ISOPTIN [Concomitant]
     Dosage: UNK
     Dates: start: 20090710
  9. SIMESTATIN [Concomitant]
     Dosage: UNK
     Dates: start: 20090710
  10. KENZEN [Concomitant]
     Dosage: 8 MG, TID
     Dates: end: 20090710
  11. PLAVIX [Concomitant]
     Dosage: 75 MG, QD
  12. DIAMICRON [Concomitant]
     Dosage: 60 MG/DAY
     Dates: start: 20090710, end: 20090722
  13. ASPEGIC 1000 [Concomitant]
     Dosage: 100 MG/DAY
     Dates: start: 20090710
  14. ARIXTRA [Concomitant]
     Dosage: 5 MG
     Dates: start: 20090710

REACTIONS (3)
  - BLOOD POTASSIUM INCREASED [None]
  - HAEMATOMA [None]
  - RENAL FAILURE ACUTE [None]
